FAERS Safety Report 9924676 (Version 2)
Quarter: 2014Q1

REPORT INFORMATION
  Report Type: Spontaneous
  Country: US (occurrence: US)
  Receive Date: 20140226
  Receipt Date: 20140310
  Transmission Date: 20141002
  Serious: Yes (Death)
  Sender: FDA-Public Use
  Company Number: US-JNJFOC-20140212432

PATIENT
  Age: 3 Year
  Sex: Male

DRUGS (6)
  1. DOXORUBICIN [Suspect]
     Indication: NEUROBLASTOMA
     Dosage: CYCLES 1, 2, 4, 6, 8
     Route: 042
  2. CYCLOPHOSPHAMIDE [Suspect]
     Indication: NEUROBLASTOMA
     Dosage: CYCLES 1, 2, 4, 6, 8
     Route: 065
  3. VINCRISTINE [Suspect]
     Indication: NEUROBLASTOMA
     Dosage: CYCLES 1, 2, 4, 6, 8
     Route: 065
  4. CISPLATIN [Suspect]
     Indication: NEUROBLASTOMA
     Dosage: CYCLES 3, 5, 7
     Route: 065
  5. ETOPOSIDE [Suspect]
     Indication: NEUROBLASTOMA
     Dosage: CYCLES 3, 5, 7
     Route: 065
  6. RADIOTHERAPY [Suspect]
     Indication: NEUROBLASTOMA
     Route: 065

REACTIONS (2)
  - Lymphoproliferative disorder [Fatal]
  - Off label use [Unknown]
